FAERS Safety Report 9179985 (Version 1)
Quarter: 2012Q4

REPORT INFORMATION
  Report Type: 
  Country: JP (occurrence: JP)
  Receive Date: 20121029
  Receipt Date: 20121029
  Transmission Date: 20130627
  Serious: Yes (Life-Threatening)
  Sender: FDA-Public Use
  Company Number: PHHY2012JP093005

PATIENT
  Age: 81 Year
  Sex: Male

DRUGS (2)
  1. LOCHOL [Suspect]
     Indication: HYPERLIPIDAEMIA
     Dosage: 30 mg, daily
     Route: 048
     Dates: end: 20121015
  2. DEPAKENE [Suspect]
     Dosage: 200 mg, daily
     Route: 048
     Dates: end: 20121015

REACTIONS (5)
  - Varicella [Unknown]
  - Drug reaction with eosinophilia and systemic symptoms [Recovering/Resolving]
  - Rash [Unknown]
  - Pyrexia [Unknown]
  - General physical health deterioration [Unknown]
